FAERS Safety Report 7203975-0 (Version None)
Quarter: 2010Q4

REPORT INFORMATION
  Report Type: 
  Country: None (occurrence: None)
  Receive Date: 20101230
  Receipt Date: 20101220
  Transmission Date: 20110411
  Serious: No
  Sender: FDA-Public Use
  Company Number: AT-ELI_LILLY_AND_COMPANY-AT201012004739

PATIENT
  Sex: Female
  Weight: 85 kg

DRUGS (4)
  1. CYMBALTA [Suspect]
     Indication: DEPRESSION
     Dosage: UNK UNK, DAILY (1/D)
     Dates: start: 20100901
  2. CYMBALTA [Suspect]
     Dosage: 60 MG, DAILY (1/D)
  3. CYMBALTA [Suspect]
     Dosage: 90 MG, DAILY (1/D)
  4. TRAZODONE HCL [Concomitant]

REACTIONS (1)
  - GAMMA-GLUTAMYLTRANSFERASE INCREASED [None]
